FAERS Safety Report 17039482 (Version 1)
Quarter: 2019Q4

REPORT INFORMATION
  Report Type: Spontaneous
  Country: US (occurrence: US)
  Receive Date: 20191115
  Receipt Date: 20191115
  Transmission Date: 20200122
  Serious: Yes (Other)
  Sender: FDA-Public Use
  Company Number: US-SHIRE-US201939355

PATIENT
  Age: 60 Year
  Sex: Female
  Weight: 58.05 kg

DRUGS (5)
  1. REMICADE [Concomitant]
     Active Substance: INFLIXIMAB
     Indication: PRODUCT USED FOR UNKNOWN INDICATION
  2. PENTASA [Suspect]
     Active Substance: MESALAMINE
     Indication: CROHN^S DISEASE
     Dosage: UNK
     Route: 065
  3. HUMIRA [Suspect]
     Active Substance: ADALIMUMAB
     Dosage: 40 MILLIGRAM/0.4ML
     Route: 058
     Dates: start: 201905
  4. HUMIRA [Suspect]
     Active Substance: ADALIMUMAB
     Indication: CROHN^S DISEASE
     Dosage: 40 MILLIGRAM/0.8ML
     Route: 058
     Dates: start: 201905
  5. LISINOPRIL. [Concomitant]
     Active Substance: LISINOPRIL
     Indication: HYPERTENSION

REACTIONS (9)
  - Injection site pain [Unknown]
  - Injection site urticaria [Not Recovered/Not Resolved]
  - Device issue [Unknown]
  - Injection site bruising [Unknown]
  - Immunosuppression [Unknown]
  - Crohn^s disease [Unknown]
  - Intestinal stenosis [Not Recovered/Not Resolved]
  - Food intolerance [Not Recovered/Not Resolved]
  - Dry eye [Not Recovered/Not Resolved]

NARRATIVE: CASE EVENT DATE: 2019
